FAERS Safety Report 6342249-7 (Version None)
Quarter: 2009Q3

REPORT INFORMATION
  Report Type: 
  Country: None (occurrence: None)
  Receive Date: 20090903
  Receipt Date: 20090903
  Transmission Date: 20100115
  Serious: No
  Sender: FDA-Public Use
  Company Number: None

PATIENT
  Age: 69 Year
  Sex: Male

DRUGS (1)
  1. INSULIN [Suspect]
     Indication: DIABETES MELLITUS
     Dates: start: 20090714, end: 20090801

REACTIONS (7)
  - BLOOD PRESSURE INCREASED [None]
  - BRADYCARDIA [None]
  - CONVULSION [None]
  - HEART RATE INCREASED [None]
  - HYPOGLYCAEMIA [None]
  - HYPOTENSION [None]
  - UNRESPONSIVE TO STIMULI [None]
